FAERS Safety Report 16683466 (Version 2)
Quarter: 2019Q3

REPORT INFORMATION
  Report Type: Spontaneous
  Country: KR (occurrence: KR)
  Receive Date: 20190808
  Receipt Date: 20190813
  Transmission Date: 20191004
  Serious: Yes (Life-Threatening, Hospitalization, Other)
  Sender: FDA-Public Use
  Company Number: KR-JNJFOC-20190622401

PATIENT
  Age: 76 Year
  Sex: Female

DRUGS (2)
  1. CAELYX [Suspect]
     Active Substance: DOXORUBICIN HYDROCHLORIDE
     Indication: HEPATOCELLULAR CARCINOMA
     Route: 065
  2. ENTECAVIR. [Concomitant]
     Active Substance: ENTECAVIR
     Indication: CHRONIC HEPATITIS B
     Dosage: HAS BEEN RECEIVING ENTECAVIR FOR CHRONIC HEPATITIS B FOR 10 YEARS
     Route: 065

REACTIONS (9)
  - Product use in unapproved indication [Unknown]
  - Systemic mycosis [Not Recovered/Not Resolved]
  - Off label use [Unknown]
  - Mental disorder [Not Recovered/Not Resolved]
  - Toxicity to various agents [Not Recovered/Not Resolved]
  - Hepatic function abnormal [Not Recovered/Not Resolved]
  - Liver abscess [Not Recovered/Not Resolved]
  - Clostridial infection [Not Recovered/Not Resolved]
  - Condition aggravated [Not Recovered/Not Resolved]
